FAERS Safety Report 7426830-X (Version None)
Quarter: 2011Q2

REPORT INFORMATION
  Report Type: 
  Country: None (occurrence: None)
  Receive Date: 20110420
  Receipt Date: 20110413
  Transmission Date: 20111010
  Serious: Yes (Disabling)
  Sender: FDA-Public Use
  Company Number: CZ-MILLENNIUM PHARMACEUTICALS, INC.-2011-01589

PATIENT

DRUGS (14)
  1. DURAGESIC-100 [Concomitant]
     Dosage: UNK
  2. SEVREDOL [Concomitant]
     Dosage: UNK
     Dates: start: 20110317
  3. DICLOFENAC [Concomitant]
     Dosage: UNK
     Dates: end: 20110317
  4. BLOOD TRANSFUSION, AUXILIARY PRODUCTS [Concomitant]
     Dosage: UNK
     Dates: start: 20110314, end: 20110314
  5. BONDRONAT                          /01304701/ [Concomitant]
     Indication: MULTIPLE MYELOMA
     Dosage: UNK
  6. SUMETROLIM [Concomitant]
     Indication: PROPHYLAXIS
     Dosage: UNK
     Dates: start: 20110307
  7. VELCADE [Suspect]
     Indication: MULTIPLE MYELOMA
     Dosage: 1.2 MG, CYCLIC
     Route: 042
     Dates: start: 20110307, end: 20110314
  8. DEXAMETHASONE [Suspect]
     Indication: MULTIPLE MYELOMA
     Dosage: 20 MG, CYCLIC
     Route: 048
     Dates: start: 20110307, end: 20110314
  9. ZOVIRAX                            /00587301/ [Concomitant]
     Indication: PROPHYLAXIS
     Dosage: UNK
     Dates: start: 20110307
  10. NEURONTIN [Concomitant]
     Dosage: UNK
  11. HELICID                            /00661201/ [Concomitant]
     Indication: PROPHYLAXIS
     Dosage: UNK
     Dates: start: 20110307
  12. EPREX [Concomitant]
     Dosage: UNK
     Dates: start: 20110307, end: 20110404
  13. RIBOMUSTIN [Suspect]
     Indication: MULTIPLE MYELOMA
     Dosage: 119 MG, CYCLIC
     Route: 042
     Dates: start: 20110307, end: 20110314
  14. ZOFRAN [Concomitant]
     Indication: PROPHYLAXIS
     Dosage: UNK
     Dates: start: 20110307

REACTIONS (2)
  - AMAUROSIS [None]
  - HAEMORRHAGE [None]
